FAERS Safety Report 7991550-X (Version None)
Quarter: 2011Q4

REPORT INFORMATION
  Report Type: 
  Country: None (occurrence: None)
  Receive Date: 20111219
  Receipt Date: 20111216
  Transmission Date: 20120403
  Serious: Yes (Other)
  Sender: FDA-Public Use
  Company Number: US-PFIZER INC-2011306852

PATIENT
  Sex: Female

DRUGS (3)
  1. ADVAIR DISKUS 100/50 [Suspect]
     Dosage: UNK
  2. CHANTIX [Suspect]
     Dosage: UNK
     Route: 048
  3. LIPITOR [Suspect]
     Dosage: UNK
     Route: 048
     Dates: start: 19910101

REACTIONS (3)
  - BLOOD PRESSURE INCREASED [None]
  - ANXIETY [None]
  - STRESS [None]
